FAERS Safety Report 23705155 (Version 2)
Quarter: 2024Q2

REPORT INFORMATION
  Report Type: Report from Study
  Country: CA (occurrence: CA)
  Receive Date: 20240404
  Receipt Date: 20240408
  Transmission Date: 20240716
  Serious: Yes (Hospitalization, Other)
  Sender: FDA-Public Use
  Company Number: CA-CELLTRION INC.-2024CA007797

PATIENT

DRUGS (8)
  1. YUFLYMA [Suspect]
     Active Substance: ADALIMUMAB-AATY
     Indication: Crohn^s disease
     Dosage: 40 MG, Q2WEEKS (14 DAYS)
     Route: 058
     Dates: start: 20230914
  2. OZEMPIC [Concomitant]
     Active Substance: SEMAGLUTIDE
     Dosage: 1 MG, 1 A WEEK
  3. JARDIANCE [Concomitant]
     Active Substance: EMPAGLIFLOZIN
     Dosage: 10 MG
  4. ARIPIPRAZOLE [Concomitant]
     Active Substance: ARIPIPRAZOLE
     Dosage: 2 MG, DAILY
  5. LYRICA [Concomitant]
     Active Substance: PREGABALIN
     Dosage: 2 CAPS, 2 DAY
  6. EMPAGLIFLOZIN [Concomitant]
     Active Substance: EMPAGLIFLOZIN
     Dosage: 25 MG, ONCE A DAY
  7. LORATADINE [Concomitant]
     Active Substance: LORATADINE
     Dosage: 10 MG
  8. ALBUTEROL SULFATE [Concomitant]
     Active Substance: ALBUTEROL SULFATE
     Dosage: 1 DAILY

REACTIONS (2)
  - Crohn^s disease [Unknown]
  - General physical health deterioration [Unknown]
